FAERS Safety Report 25890709 (Version 1)
Quarter: 2025Q4

REPORT INFORMATION
  Report Type: Report from Study
  Country: US (occurrence: US)
  Receive Date: 20251007
  Receipt Date: 20251007
  Transmission Date: 20260117
  Serious: Yes (Other)
  Sender: MALLINCKRODT
  Company Number: US-MALLINCKRODT-MNK202502432

PATIENT
  Sex: Female

DRUGS (1)
  1. CORTICOTROPIN [Suspect]
     Active Substance: CORTICOTROPIN
     Indication: Conjunctivitis allergic
     Dosage: 40 UNITS

REACTIONS (5)
  - Conjunctivitis allergic [Unknown]
  - Disease progression [Unknown]
  - Immune system disorder [Unknown]
  - Sensitivity to weather change [Unknown]
  - Injection site pain [Unknown]
